FAERS Safety Report 25372717 (Version 1)
Quarter: 2025Q2

REPORT INFORMATION
  Report Type: Spontaneous
  Country: AU (occurrence: AU)
  Receive Date: 20250529
  Receipt Date: 20250529
  Transmission Date: 20250716
  Serious: Yes (Other)
  Sender: AMGEN
  Company Number: AU-AMGEN-AUSSP2025100656

PATIENT

DRUGS (3)
  1. TRASTUZUMAB [Suspect]
     Active Substance: TRASTUZUMAB
     Indication: HER2 positive breast cancer
     Route: 065
  2. TREMELIMUMAB [Concomitant]
     Active Substance: TREMELIMUMAB
     Indication: HER2 positive breast cancer
  3. DURVALUMAB [Concomitant]
     Active Substance: DURVALUMAB
     Indication: HER2 positive breast cancer

REACTIONS (1)
  - Toxicity to various agents [Unknown]
